FAERS Safety Report 17105970 (Version 1)
Quarter: 2019Q4

REPORT INFORMATION
  Report Type: Report from Study
  Country: DE (occurrence: DE)
  Receive Date: 20191203
  Receipt Date: 20191203
  Transmission Date: 20200122
  Serious: Yes (Other)
  Sender: FDA-Public Use
  Company Number: DE-MYLANLABS-2019M1116370

PATIENT
  Age: 13 Year

DRUGS (2)
  1. ADALIMUMAB [Suspect]
     Active Substance: ADALIMUMAB
     Indication: JUVENILE IDIOPATHIC ARTHRITIS
     Dosage: 30 MILLIGRAM, BIWEEKLY
     Route: 058
     Dates: start: 20121002
  2. METHOTREXATE. [Suspect]
     Active Substance: METHOTREXATE
     Indication: PRODUCT USED FOR UNKNOWN INDICATION
     Dosage: 12.5 MILLIGRAM, QW
     Route: 065
     Dates: start: 20090118

REACTIONS (2)
  - Paronychia [Recovered/Resolved]
  - Ingrowing nail [Recovered/Resolved]

NARRATIVE: CASE EVENT DATE: 20181102
